FAERS Safety Report 20709461 (Version 1)
Quarter: 2022Q2

REPORT INFORMATION
  Report Type: Spontaneous
  Country: US (occurrence: None)
  Receive Date: 20220413
  Receipt Date: 20220413
  Transmission Date: 20220720
  Serious: No
  Sender: FDA-Public Use
  Company Number: None

PATIENT
  Age: 76 Year
  Sex: Female
  Weight: 81 kg

DRUGS (1)
  1. EYLEA [Suspect]
     Active Substance: AFLIBERCEPT
     Indication: Neovascular age-related macular degeneration
     Dosage: FREQUENCY : AS NEEDED;?OTHER ROUTE : INTRAVITREAL INJECTION;?
     Route: 050

REACTIONS (1)
  - Expired product administered [None]

NARRATIVE: CASE EVENT DATE: 20220211
